FAERS Safety Report 7232518-0 (Version None)
Quarter: 2011Q1

REPORT INFORMATION
  Report Type: 
  Country: None (occurrence: None)
  Receive Date: 20110107
  Receipt Date: 20101223
  Transmission Date: 20110831
  Serious: Yes (Other)
  Sender: FDA-Public Use
  Company Number: ACO_21183_2010

PATIENT
  Age: 34 Year
  Sex: Female

DRUGS (8)
  1. COPAXONE [Concomitant]
  2. DETROL LA [Concomitant]
  3. TOPAMAX [Concomitant]
  4. CELEBREX [Concomitant]
  5. AMPYRA [Suspect]
     Indication: GAIT DISTURBANCE
     Dosage: 10 MG, BID, ORAL
     Route: 048
     Dates: start: 20101029, end: 20101129
  6. MIRAPEX [Concomitant]
  7. CELEXA [Concomitant]
  8. AMITRIPTYLINE HYDROCHLORIDE [Concomitant]

REACTIONS (3)
  - BLOOD PRESSURE INCREASED [None]
  - ERYTHEMA [None]
  - DYSPNOEA [None]
